FAERS Safety Report 13307449 (Version 16)
Quarter: 2021Q1

REPORT INFORMATION
  Report Type: Spontaneous
  Country: FR (occurrence: FR)
  Receive Date: 20170308
  Receipt Date: 20210322
  Transmission Date: 20210419
  Serious: Yes (Death, Hospitalization, Other)
  Sender: FDA-Public Use
  Company Number: PHHY2017FR032862

PATIENT
  Age: 71 Year
  Sex: Male
  Weight: 113.4 kg

DRUGS (46)
  1. QUESTRAN [Suspect]
     Active Substance: CHOLESTYRAMINE
     Indication: SKIN INFECTION
     Dosage: 4 G, 1X/DAY
     Route: 048
     Dates: start: 20161216, end: 20170119
  2. POLARAMINE [Concomitant]
     Active Substance: DEXCHLORPHENIRAMINE MALEATE
     Indication: PRODUCT USED FOR UNKNOWN INDICATION
     Dosage: UNK
     Route: 065
  3. POTASSIUM CHLORIDE. [Concomitant]
     Active Substance: POTASSIUM CHLORIDE
     Indication: PRODUCT USED FOR UNKNOWN INDICATION
     Dosage: UNK
     Route: 065
  4. PANTOPRAZOLE [Suspect]
     Active Substance: PANTOPRAZOLE
     Indication: SKIN INFECTION
  5. NEFOPAM [Suspect]
     Active Substance: NEFOPAM
     Indication: CHEST SCAN
     Dosage: UNK
     Route: 042
     Dates: start: 20161202, end: 20170119
  6. FUROSEMIDE. [Concomitant]
     Active Substance: FUROSEMIDE
     Indication: PRODUCT USED FOR UNKNOWN INDICATION
     Dosage: UNK
     Route: 065
  7. PIPERACILLIN,TAZOBACTAM [Suspect]
     Active Substance: PIPERACILLIN SODIUM\TAZOBACTAM SODIUM
     Indication: CHEST SCAN
     Dosage: 1 DF, 3X/DAY
     Route: 042
     Dates: start: 20161204, end: 20170130
  8. VANCOMYCIN HYDROCHLORIDE. [Suspect]
     Active Substance: VANCOMYCIN HYDROCHLORIDE
     Indication: SKIN INFECTION
  9. LINEZOLID. [Suspect]
     Active Substance: LINEZOLID
     Indication: SKIN INFECTION
     Dosage: 600 MG, BID
     Route: 048
     Dates: start: 20161222, end: 20170110
  10. QUESTRAN [Suspect]
     Active Substance: CHOLESTYRAMINE
     Indication: CHEST SCAN
  11. CHOLESTYRAMINE. [Suspect]
     Active Substance: CHOLESTYRAMINE
     Indication: SKIN INFECTION
  12. LOPERAMIDE [Concomitant]
     Active Substance: LOPERAMIDE
     Indication: PRODUCT USED FOR UNKNOWN INDICATION
     Dosage: UNK
     Route: 065
  13. LANTUS [Concomitant]
     Active Substance: INSULIN GLARGINE
     Indication: PRODUCT USED FOR UNKNOWN INDICATION
     Route: 065
  14. TRAMADOL+PARACETAMOL [Suspect]
     Active Substance: ACETAMINOPHEN\TRAMADOL
     Indication: PRODUCT USED FOR UNKNOWN INDICATION
     Dosage: 8 DF, 1X/DAY
     Route: 048
     Dates: start: 20161201, end: 20170119
  15. RACECADOTRIL [Suspect]
     Active Substance: RACECADOTRIL
     Indication: SKIN INFECTION
  16. PRIMPERAN [Suspect]
     Active Substance: METOCLOPRAMIDE HYDROCHLORIDE
     Indication: SKIN INFECTION
     Dosage: 10 MG, TID (3 DF, TID (1 DF TID))
     Route: 048
     Dates: start: 20161224, end: 20170119
  17. NEFOPAM [Suspect]
     Active Substance: NEFOPAM
     Indication: SKIN INFECTION
  18. DAPTOMYCIN. [Suspect]
     Active Substance: DAPTOMYCIN
     Indication: CHEST SCAN
     Dosage: 800 MG, 1X/DAY
     Route: 042
     Dates: start: 20170110, end: 20170201
  19. DIFFU?K [Concomitant]
     Active Substance: POTASSIUM CHLORIDE
     Indication: PRODUCT USED FOR UNKNOWN INDICATION
     Dosage: UNK
     Route: 065
  20. DUPHALAC [Concomitant]
     Active Substance: LACTULOSE
     Indication: PRODUCT USED FOR UNKNOWN INDICATION
     Route: 065
  21. CUBICIN [Suspect]
     Active Substance: DAPTOMYCIN
     Indication: CHEST SCAN
     Dosage: 800 MG, QD
     Route: 042
     Dates: start: 20170110, end: 20170201
  22. ULTRAVIST [Suspect]
     Active Substance: IOPROMIDE
     Indication: CHEST SCAN
     Dosage: 370 MG, UNK
     Route: 042
     Dates: start: 20170116, end: 20170116
  23. RIFADIN [Suspect]
     Active Substance: RIFAMPIN
     Indication: CHEST SCAN
     Route: 065
  24. DAPTOMYCIN. [Suspect]
     Active Substance: DAPTOMYCIN
     Indication: SKIN INFECTION
  25. LINEZOLIDE ARROW [Suspect]
     Active Substance: LINEZOLID
     Indication: SKIN INFECTION
  26. RIFAMPICIN [Suspect]
     Active Substance: RIFAMPIN
     Indication: CHEST SCAN
     Route: 065
  27. METOCLOPRAMIDE HYDROCHLORIDE. [Suspect]
     Active Substance: METOCLOPRAMIDE HYDROCHLORIDE
     Indication: CHEST SCAN
     Dosage: 30 MG, 1X/DAY
     Route: 048
  28. RACECADOTRIL [Suspect]
     Active Substance: RACECADOTRIL
     Indication: CHEST SCAN
     Dosage: 1 DF, TID
     Route: 048
     Dates: start: 20161209, end: 20170119
  29. PRIMPERAN [Suspect]
     Active Substance: METOCLOPRAMIDE HYDROCHLORIDE
     Indication: CHEST SCAN
  30. ULTRAVIST [Suspect]
     Active Substance: IOPROMIDE
     Indication: SKIN INFECTION
  31. LINEZOLIDE ARROW [Suspect]
     Active Substance: LINEZOLID
     Indication: CHEST SCAN
     Dosage: 600 MG, BID
     Route: 048
     Dates: start: 20161222, end: 20170110
  32. KARDEGIC [Concomitant]
     Active Substance: ASPIRIN DL-LYSINE
     Indication: PRODUCT USED FOR UNKNOWN INDICATION
     Route: 065
  33. LOVENOX [Concomitant]
     Active Substance: ENOXAPARIN SODIUM
     Indication: PRODUCT USED FOR UNKNOWN INDICATION
     Dosage: UNK
     Route: 065
     Dates: start: 20170114
  34. INSULIN HUMAN [Concomitant]
     Active Substance: INSULIN HUMAN
     Indication: PRODUCT USED FOR UNKNOWN INDICATION
     Dosage: UNK
     Route: 065
  35. CUBICIN [Suspect]
     Active Substance: DAPTOMYCIN
     Indication: SKIN INFECTION
  36. RIFAMPICIN [Suspect]
     Active Substance: RIFAMPIN
     Indication: SKIN INFECTION
  37. PANTOPRAZOLE [Suspect]
     Active Substance: PANTOPRAZOLE
     Indication: CHEST SCAN
     Dosage: UNK
     Route: 042
     Dates: start: 20161225, end: 20170119
  38. VANCOMYCIN HYDROCHLORIDE. [Suspect]
     Active Substance: VANCOMYCIN HYDROCHLORIDE
     Indication: CHEST SCAN
     Dosage: UNK
     Route: 065
  39. METOCLOPRAMIDE HYDROCHLORIDE. [Suspect]
     Active Substance: METOCLOPRAMIDE HYDROCHLORIDE
     Indication: SKIN INFECTION
  40. LINEZOLID. [Suspect]
     Active Substance: LINEZOLID
     Indication: CHEST SCAN
     Dosage: 600 MG, BID
     Route: 048
     Dates: start: 20161222, end: 20170110
  41. SIMBICORT TURBUHALER [Suspect]
     Active Substance: BUDESONIDE\FORMOTEROL FUMARATE
     Indication: PRODUCT USED FOR UNKNOWN INDICATION
     Dosage: 1 DF, QD
     Route: 055
     Dates: start: 20161220, end: 20170119
  42. RIFADIN [Suspect]
     Active Substance: RIFAMPIN
     Indication: SKIN INFECTION
  43. CHOLESTYRAMINE. [Suspect]
     Active Substance: CHOLESTYRAMINE
     Indication: CHEST SCAN
     Dosage: UNK
     Route: 065
  44. LOVENOX [Concomitant]
     Active Substance: ENOXAPARIN SODIUM
     Dosage: UNK
     Route: 065
  45. PIPERACILLIN,TAZOBACTAM [Suspect]
     Active Substance: PIPERACILLIN SODIUM\TAZOBACTAM SODIUM
     Indication: SKIN INFECTION
  46. UMULINE ZINC COMPOSE [Concomitant]
     Active Substance: INSULIN HUMAN
     Indication: PRODUCT USED FOR UNKNOWN INDICATION
     Dosage: UNK
     Route: 065

REACTIONS (18)
  - Death [Fatal]
  - Sepsis [Fatal]
  - Pulmonary interstitial emphysema syndrome [Fatal]
  - Generalised oedema [Fatal]
  - Acute kidney injury [Fatal]
  - Eosinophilia [Fatal]
  - Restlessness [Fatal]
  - Thrombocytopenia [Fatal]
  - Dyspnoea [Fatal]
  - Glomerular filtration rate decreased [Fatal]
  - Alveolar lung disease [Fatal]
  - Eosinophilic pneumonia [Fatal]
  - Hyperammonaemia [Fatal]
  - Diffuse alveolar damage [Fatal]
  - Hepatic encephalopathy [Fatal]
  - Eczema [Fatal]
  - Rectal haemorrhage [Fatal]
  - Rash maculo-papular [Fatal]

NARRATIVE: CASE EVENT DATE: 20161227
